FAERS Safety Report 5781077-8 (Version None)
Quarter: 2008Q2

REPORT INFORMATION
  Report Type: 
  Country: None (occurrence: None)
  Receive Date: 20080620
  Receipt Date: 20080612
  Transmission Date: 20081010
  Serious: Yes (Hospitalization)
  Sender: FDA-Public Use
  Company Number: FR-PFIZER INC-2008049984

PATIENT
  Sex: Male

DRUGS (16)
  1. ZOLOFT [Suspect]
     Route: 048
  2. PREVISCAN [Suspect]
     Dosage: DAILY DOSE:.75MG
     Route: 048
  3. LEUPROLIDE ACETATE [Suspect]
     Route: 058
  4. RAMIPRIL [Suspect]
     Dosage: DAILY DOSE:10MG
     Route: 048
  5. LASIX [Suspect]
     Dosage: DAILY DOSE:20MG
     Route: 048
  6. ASPIRIN [Suspect]
     Dosage: DAILY DOSE:75MG
     Route: 048
  7. BISOPROLOL FUMARATE [Suspect]
     Dosage: DAILY DOSE:10MG
     Route: 048
  8. TAMSULOSIN HCL [Suspect]
     Route: 048
  9. NEXIUM [Suspect]
     Dosage: DAILY DOSE:40MG
     Route: 048
  10. PRAVASTATIN [Concomitant]
  11. ALDACTONE [Concomitant]
  12. LEXOMIL [Concomitant]
  13. ZOPICLONE [Concomitant]
  14. TRANSILANE [Concomitant]
  15. CARBOSYLANE [Concomitant]
  16. TRIMEBUTINE [Concomitant]

REACTIONS (1)
  - TOXIC SKIN ERUPTION [None]
